FAERS Safety Report 7762750-9 (Version None)
Quarter: 2011Q3

REPORT INFORMATION
  Report Type: 
  Country: None (occurrence: None)
  Receive Date: 20110920
  Receipt Date: 20110912
  Transmission Date: 20111222
  Serious: Yes (Other)
  Sender: FDA-Public Use
  Company Number: IN-ASTRAZENECA-2011SE54339

PATIENT
  Age: 30 Year
  Sex: Female
  Weight: 70 kg

DRUGS (3)
  1. LIGNOCAINE WITH EPINEPHRINE [Suspect]
     Route: 053
  2. DIAZEPAM [Concomitant]
     Dosage: 10 MG
     Route: 048
  3. BUPIVACAINE HCL [Suspect]
     Route: 053

REACTIONS (1)
  - APHONIA [None]
